FAERS Safety Report 7148674-9 (Version None)
Quarter: 2010Q4

REPORT INFORMATION
  Report Type: 
  Country: None (occurrence: None)
  Receive Date: 20101122
  Receipt Date: 20101111
  Transmission Date: 20110411
  Serious: Yes (Other)
  Sender: FDA-Public Use
  Company Number: 2010SP058239

PATIENT
  Sex: Female

DRUGS (2)
  1. NUVARING [Suspect]
     Indication: PRODUCT USED FOR UNKNOWN INDICATION
     Dosage: VAG
     Route: 067
  2. CHAMPIX /05703001/ [Concomitant]

REACTIONS (2)
  - ECTOPIC PREGNANCY [None]
  - UNINTENDED PREGNANCY [None]
